FAERS Safety Report 18877566 (Version 1)
Quarter: 2021Q1

REPORT INFORMATION
  Report Type: Spontaneous
  Country: DE (occurrence: DE)
  Receive Date: 20210211
  Receipt Date: 20210211
  Transmission Date: 20210420
  Serious: Yes (Death, Other)
  Sender: FDA-Public Use
  Company Number: DE-AMGEN-DEUSP2021021618

PATIENT
  Age: 1 Day
  Sex: Female

DRUGS (3)
  1. IVABRADINE [Suspect]
     Active Substance: IVABRADINE
     Indication: FOETAL EXPOSURE TIMING UNSPECIFIED
     Dosage: UNK
     Route: 065
  2. NAPROXEN. [Concomitant]
     Active Substance: NAPROXEN
     Indication: FOETAL EXPOSURE TIMING UNSPECIFIED
     Dosage: UNK
  3. METAMIZOLE [Concomitant]
     Active Substance: METAMIZOLE
     Indication: FOETAL EXPOSURE TIMING UNSPECIFIED
     Dosage: UNK

REACTIONS (1)
  - Tracheal atresia [Fatal]

NARRATIVE: CASE EVENT DATE: 2019
